FAERS Safety Report 5552592-7 (Version None)
Quarter: 2007Q4

REPORT INFORMATION
  Report Type: 
  Country: None (occurrence: None)
  Receive Date: 20071212
  Receipt Date: 20070620
  Transmission Date: 20080405
  Serious: No
  Sender: FDA-Public Use
  Company Number: US-AMGEN-KDL230397

PATIENT
  Sex: Female

DRUGS (3)
  1. ENBREL [Suspect]
     Indication: PSORIATIC ARTHROPATHY
     Route: 058
     Dates: start: 20070521
  2. ARAVA [Concomitant]
     Dates: start: 20070101
  3. PLAQUENIL [Concomitant]
     Dates: start: 20050101

REACTIONS (2)
  - INJECTION SITE BRUISING [None]
  - INJECTION SITE INDURATION [None]
